FAERS Safety Report 7753668-6 (Version None)
Quarter: 2011Q3

REPORT INFORMATION
  Report Type: 
  Country: None (occurrence: None)
  Receive Date: 20110915
  Receipt Date: 20110915
  Transmission Date: 20111222
  Serious: Yes (Other)
  Sender: FDA-Public Use
  Company Number: None

PATIENT
  Age: 44 Year
  Sex: Female
  Weight: 63.502 kg

DRUGS (2)
  1. SUDAFED 12 HOUR [Suspect]
     Indication: SINUSITIS
     Dosage: 1 DAY
     Route: 048
  2. SUDAFED 12 HOUR [Suspect]
     Indication: NASOPHARYNGITIS
     Dosage: 1 DAY
     Route: 048

REACTIONS (1)
  - MIDDLE INSOMNIA [None]
